FAERS Safety Report 5647250-4 (Version None)
Quarter: 2008Q1

REPORT INFORMATION
  Report Type: 
  Country: None (occurrence: None)
  Receive Date: 20080303
  Receipt Date: 20080227
  Transmission Date: 20080703
  Serious: Yes (Life-Threatening, Hospitalization, Other)
  Sender: FDA-Public Use
  Company Number: PHHO2007DE18519

PATIENT
  Age: 79 Year
  Sex: Female
  Weight: 55 kg

DRUGS (5)
  1. ZOLEDRONIC ACID [Suspect]
     Indication: OSTEOPOROSIS
     Dosage: 5 MG, UNK
     Route: 042
     Dates: start: 20071106
  2. VITAMIN D [Concomitant]
  3. CALCIUM [Concomitant]
  4. MONOMACK [Concomitant]
  5. CALOGEN [Concomitant]

REACTIONS (18)
  - AORTIC ARTERIOSCLEROSIS [None]
  - BLOOD CREATINE PHOSPHOKINASE INCREASED [None]
  - BUNDLE BRANCH BLOCK LEFT [None]
  - C-REACTIVE PROTEIN INCREASED [None]
  - ELECTROCARDIOGRAM T WAVE INVERSION [None]
  - FALL [None]
  - HYPOKINESIA [None]
  - HYPONATRAEMIA [None]
  - INTENSIVE CARE [None]
  - LOSS OF CONSCIOUSNESS [None]
  - MENTAL DISORDER DUE TO A GENERAL MEDICAL CONDITION [None]
  - MYOGLOBIN BLOOD INCREASED [None]
  - PALLOR [None]
  - PULMONARY CONGESTION [None]
  - RESPIRATORY DISORDER [None]
  - URINE ELECTROLYTES INCREASED [None]
  - VISUAL DISTURBANCE [None]
  - VOMITING [None]
